FAERS Safety Report 8883649 (Version 1)
Quarter: 2012Q4

REPORT INFORMATION
  Report Type: 
  Country: US (occurrence: US)
  Receive Date: 20121102
  Receipt Date: 20121102
  Transmission Date: 20130627
  Serious: Yes (Other)
  Sender: FDA-Public Use
  Company Number: US-ROCHE-1130988

PATIENT
  Sex: Male

DRUGS (4)
  1. RITUXAN [Suspect]
     Indication: CENTRAL NERVOUS SYSTEM LYMPHOMA
     Route: 065
     Dates: start: 20000302
  2. RITUXAN [Suspect]
     Indication: OFF LABEL USE
  3. RITUXAN [Suspect]
     Indication: NON-HODGKIN^S LYMPHOMA
  4. BENADRYL [Concomitant]

REACTIONS (6)
  - Mental status changes [Unknown]
  - Dysarthria [Unknown]
  - Lethargy [Unknown]
  - Aggression [Unknown]
  - Disorientation [Unknown]
  - Asthenia [Unknown]
